FAERS Safety Report 9144301 (Version 1)
Quarter: 2013Q1

REPORT INFORMATION
  Report Type: Spontaneous
  Country: KR (occurrence: KR)
  Receive Date: 20130306
  Receipt Date: 20130306
  Transmission Date: 20140127
  Serious: Yes (Hospitalization)
  Sender: FDA-Public Use
  Company Number: KR-JHP PHARMACEUTICALS, LLC-JHP201300116

PATIENT
  Age: 51 Year
  Sex: Female

DRUGS (2)
  1. ADRENALIN [Suspect]
     Indication: HAEMOSTASIS
     Dosage: 1:10000 (6 ML) - SUBMUCOSAL
     Route: 050
  2. ADRENALIN [Suspect]
     Dosage: 1:10000 (8 ML) - SUBMUCOSAL
     Route: 050

REACTIONS (1)
  - Gastrointestinal ischaemia [Recovered/Resolved]
